FAERS Safety Report 23635375 (Version 1)
Quarter: 2024Q1

REPORT INFORMATION
  Report Type: Report from Study
  Country: IT (occurrence: IT)
  Receive Date: 20240315
  Receipt Date: 20240315
  Transmission Date: 20240410
  Serious: Yes (Other)
  Sender: FDA-Public Use
  Company Number: IT-AUROBINDO-AUR-APL-2024-011654

PATIENT
  Age: 76 Year
  Sex: Female

DRUGS (2)
  1. APIXABAN [Interacting]
     Active Substance: APIXABAN
     Indication: Anticoagulant therapy
     Dosage: UNK
     Route: 048
  2. CARBAMAZEPINE [Interacting]
     Active Substance: CARBAMAZEPINE
     Indication: Partial seizures
     Dosage: 400 MILLIGRAM, DAILY
     Route: 065

REACTIONS (3)
  - Vascular encephalopathy [Unknown]
  - Drug level decreased [Unknown]
  - Drug interaction [Unknown]
